FAERS Safety Report 17367601 (Version 1)
Quarter: 2020Q1

REPORT INFORMATION
  Report Type: Spontaneous
  Country: US (occurrence: US)
  Receive Date: 20200203
  Receipt Date: 20200203
  Transmission Date: 20200409
  Serious: Yes (Hospitalization, Disabling)
  Sender: FDA-Public Use
  Company Number: None

PATIENT
  Age: 61 Year
  Sex: Female
  Weight: 76.5 kg

DRUGS (11)
  1. MONTELUKAST [Concomitant]
     Active Substance: MONTELUKAST SODIUM
  2. AMITIZA [Concomitant]
     Active Substance: LUBIPROSTONE
  3. D2 [Concomitant]
  4. MONTELUKAST [Suspect]
     Active Substance: MONTELUKAST SODIUM
     Indication: ASTHMA
     Dosage: ?          QUANTITY:1 TABLET(S);?
     Route: 048
  5. XANOFLEX [Concomitant]
  6. MAGNESIUM [Concomitant]
     Active Substance: MAGNESIUM
  7. VITAMIN D3 [Concomitant]
     Active Substance: CHOLECALCIFEROL
  8. MELATONIN [Concomitant]
     Active Substance: MELATONIN
  9. NP THYROID [Concomitant]
     Active Substance: LEVOTHYROXINE\LIOTHYRONINE
  10. SYMBICORT [Concomitant]
     Active Substance: BUDESONIDE\FORMOTEROL FUMARATE DIHYDRATE
  11. CLONIDINE. [Concomitant]
     Active Substance: CLONIDINE

REACTIONS (9)
  - Palpitations [None]
  - Dyspepsia [None]
  - Fatigue [None]
  - Ill-defined disorder [None]
  - Asthenia [None]
  - Chronic fatigue syndrome [None]
  - Depression [None]
  - Autoscopy [None]
  - Anxiety [None]

NARRATIVE: CASE EVENT DATE: 20190323
